FAERS Safety Report 22324697 (Version 1)
Quarter: 2023Q2

REPORT INFORMATION
  Report Type: Spontaneous
  Country: US (occurrence: None)
  Receive Date: 20230513
  Receipt Date: 20230513
  Transmission Date: 20230722
  Serious: Yes (Disabling)
  Sender: FDA-Public Use
  Company Number: None

PATIENT
  Age: 38 Year
  Sex: Female
  Weight: 85.5 kg

DRUGS (3)
  1. DEXTROAMPHET SACCHARAT, AMPHET ASPARTATE, DEXTROAMPHET SULFATE AND AMP [Suspect]
     Active Substance: AMPHETAMINE ASPARTATE\AMPHETAMINE ASPARTATE MONOHYDRATE\AMPHETAMINE SULFATE\DEXTROAMPHETAMINE SACCHA
     Indication: Attention deficit hyperactivity disorder
     Dosage: OTHER QUANTITY : 1 TABLET(S);?FREQUENCY : TWICE A DAY;?
     Route: 048
  2. ADDERALL [Concomitant]
     Active Substance: AMPHETAMINE ASPARTATE\AMPHETAMINE SULFATE\DEXTROAMPHETAMINE SACCHARATE\DEXTROAMPHETAMINE SULFATE
  3. ADVIL [Concomitant]
     Active Substance: IBUPROFEN

REACTIONS (9)
  - Product substitution issue [None]
  - Wrong schedule [None]
  - Brain fog [None]
  - Fatigue [None]
  - Lethargy [None]
  - Headache [None]
  - Loss of personal independence in daily activities [None]
  - Job dissatisfaction [None]
  - Drug ineffective [None]

NARRATIVE: CASE EVENT DATE: 20230513
